FAERS Safety Report 19973952 (Version 1)
Quarter: 2021Q4

REPORT INFORMATION
  Report Type: Spontaneous
  Country: US (occurrence: US)
  Receive Date: 20210928
  Receipt Date: 20210928
  Transmission Date: 20220303
  Serious: Yes (Hospitalization)
  Sender: FDA-Public Use
  Company Number: None

PATIENT
  Age: 37 Year
  Sex: Female

DRUGS (4)
  1. BAMLANIVIMAB\ETESEVIMAB [Suspect]
     Active Substance: BAMLANIVIMAB\ETESEVIMAB
     Indication: COVID-19
     Route: 042
     Dates: start: 20210917, end: 20210917
  2. PREDNISONE [Concomitant]
     Active Substance: PREDNISONE
  3. COLACE [Concomitant]
     Active Substance: DOCUSATE SODIUM
  4. VITAMINS [Concomitant]
     Active Substance: VITAMINS

REACTIONS (7)
  - Pre-eclampsia [None]
  - Back pain [None]
  - Pain in extremity [None]
  - Maternal exposure timing unspecified [None]
  - Maternal drugs affecting foetus [None]
  - Premature delivery [None]
  - Oxygen saturation decreased [None]

NARRATIVE: CASE EVENT DATE: 20210917
